FAERS Safety Report 7302434-4 (Version None)
Quarter: 2011Q1

REPORT INFORMATION
  Report Type: 
  Country: None (occurrence: None)
  Receive Date: 20110218
  Receipt Date: 20101013
  Transmission Date: 20110831
  Serious: No
  Sender: FDA-Public Use
  Company Number: US-ASTRAZENECA-2010SE48481

PATIENT
  Sex: Male

DRUGS (1)
  1. FELODIPINE [Suspect]
     Indication: HYPERTENSION
     Route: 048
     Dates: start: 20100101, end: 20101004

REACTIONS (3)
  - PARAESTHESIA [None]
  - TRIGGER FINGER [None]
  - CARPAL TUNNEL SYNDROME [None]
